FAERS Safety Report 5174941-4 (Version None)
Quarter: 2006Q4

REPORT INFORMATION
  Report Type: 
  Country: None (occurrence: None)
  Receive Date: 20061214
  Receipt Date: 20060602
  Transmission Date: 20070319
  Serious: No
  Sender: FDA-Public Use
  Company Number: US-AMGEN-KDL181754

PATIENT
  Sex: Male

DRUGS (1)
  1. ENBREL [Suspect]
     Indication: PSORIASIS
     Route: 058
     Dates: start: 20051210

REACTIONS (4)
  - CONDITION AGGRAVATED [None]
  - DYSURIA [None]
  - OCULAR HYPERAEMIA [None]
  - PSORIASIS [None]
